FAERS Safety Report 20155555 (Version 4)
Quarter: 2022Q1

REPORT INFORMATION
  Report Type: Spontaneous
  Country: US (occurrence: US)
  Receive Date: 20211207
  Receipt Date: 20220107
  Transmission Date: 20220423
  Serious: Yes (Hospitalization, Other)
  Sender: FDA-Public Use
  Company Number: US-PFIZER INC-202101639506

PATIENT
  Age: 90 Year
  Sex: Female
  Weight: 52.16 kg

DRUGS (3)
  1. ESTRING [Suspect]
     Active Substance: ESTRADIOL
     Indication: Prophylaxis urinary tract infection
     Dosage: VERY LOW DOSE
     Route: 067
     Dates: start: 20151209
  2. ESTRING [Suspect]
     Active Substance: ESTRADIOL
     Indication: Atrophic vulvovaginitis
  3. ESTRING [Suspect]
     Active Substance: ESTRADIOL
     Indication: Urinary tract infection

REACTIONS (6)
  - Urinary tract infection [Recovered/Resolved]
  - Dementia [Not Recovered/Not Resolved]
  - Loss of consciousness [Unknown]
  - Amnesia [Unknown]
  - Abdominal distension [Unknown]
  - Drug effective for unapproved indication [Unknown]

NARRATIVE: CASE EVENT DATE: 20170101
